FAERS Safety Report 9736900 (Version 2)
Quarter: 2014Q1

REPORT INFORMATION
  Report Type: Spontaneous
  Country: US (occurrence: US)
  Receive Date: 20131206
  Receipt Date: 20140326
  Transmission Date: 20141002
  Serious: No
  Sender: FDA-Public Use
  Company Number: US-BIOGENIDEC-2013BI095505

PATIENT
  Age: 60 Year
  Sex: Female

DRUGS (5)
  1. TECFIDERA [Suspect]
     Indication: MULTIPLE SCLEROSIS
     Route: 048
  2. TECFIDERA [Suspect]
     Indication: MULTIPLE SCLEROSIS
     Dates: start: 2013
  3. TECFIDERA [Suspect]
     Indication: MULTIPLE SCLEROSIS
     Route: 048
     Dates: start: 20130829, end: 20130907
  4. TECFIDERA [Suspect]
     Indication: MULTIPLE SCLEROSIS
     Route: 048
     Dates: end: 20130927
  5. AVONEX [Concomitant]
     Indication: MULTIPLE SCLEROSIS
     Route: 030
     Dates: start: 19991001

REACTIONS (12)
  - Drug intolerance [Unknown]
  - Paraesthesia [Unknown]
  - Vomiting [Recovered/Resolved]
  - Diarrhoea [Recovered/Resolved]
  - Nausea [Unknown]
  - Flushing [Recovered/Resolved]
  - Dehydration [Unknown]
  - Asthenia [Unknown]
  - Mobility decreased [Unknown]
  - Abdominal pain upper [Recovered/Resolved]
  - Dyspepsia [Not Recovered/Not Resolved]
  - Abdominal discomfort [Unknown]
